FAERS Safety Report 5450505-X (Version None)
Quarter: 2007Q3

REPORT INFORMATION
  Report Type: 
  Country: None (occurrence: None)
  Receive Date: 20070912
  Receipt Date: 20070907
  Transmission Date: 20080115
  Serious: Yes (Hospitalization)
  Sender: FDA-Public Use
  Company Number: US-BOEHRINGER INGELHEIM PHARMACEUTICALS, INC.-2007-BP-08967BP

PATIENT
  Age: 41 Year
  Sex: Male

DRUGS (6)
  1. FLOMAX [Suspect]
     Indication: NEPHROLITHIASIS
     Route: 048
     Dates: start: 20070525
  2. ADVAIR DISKUS 100/50 [Concomitant]
  3. CIPRO [Concomitant]
  4. PYRIDIUM [Concomitant]
  5. HYDROCODONE [Concomitant]
  6. MOTRIN [Concomitant]

REACTIONS (4)
  - LITHOTRIPSY [None]
  - NEPHROLITHIASIS [None]
  - PAIN [None]
  - RENAL COLIC [None]
